FAERS Safety Report 6812195-0 (Version None)
Quarter: 2010Q3

REPORT INFORMATION
  Report Type: 
  Country: None (occurrence: None)
  Receive Date: 20100701
  Receipt Date: 20100623
  Transmission Date: 20110219
  Serious: Yes (Other)
  Sender: FDA-Public Use
  Company Number: DE-ASTRAZENECA-2010SE29417

PATIENT
  Age: 892 Month

DRUGS (6)
  1. CRESTOR [Suspect]
     Indication: HYPERCHOLESTEROLAEMIA
     Route: 048
     Dates: start: 20100401, end: 20100601
  2. FELODIPINE [Concomitant]
  3. ALLOPURINOL [Concomitant]
  4. VEROSPIRON [Concomitant]
  5. DYNORM PLUS [Concomitant]
  6. MARCUMAR [Concomitant]

REACTIONS (3)
  - ARTHRALGIA [None]
  - HYPERTONIA [None]
  - SKIN BURNING SENSATION [None]
